FAERS Safety Report 12143344 (Version 1)
Quarter: 2016Q1

REPORT INFORMATION
  Report Type: Spontaneous
  Country: US (occurrence: US)
  Receive Date: 20160304
  Receipt Date: 20160304
  Transmission Date: 20160526
  Serious: No
  Sender: FDA-Public Use
  Company Number: PHHY2015US069651

PATIENT
  Age: 35 Year
  Sex: Female

DRUGS (8)
  1. ZOFRAN [Suspect]
     Active Substance: ONDANSETRON HYDROCHLORIDE
     Indication: PRODUCT USED FOR UNKNOWN INDICATION
     Route: 065
  2. MORPHINE [Suspect]
     Active Substance: MORPHINE
     Dosage: 1.5275 MG/DAY
     Route: 037
     Dates: start: 201505
  3. BACLOFEN INTRATHECAL [Suspect]
     Active Substance: BACLOFEN
     Indication: PAIN
     Dosage: CONCENTRATION 2000 MCG/ML, 470 MCG/DAY
     Route: 037
  4. BACLOFEN INTRATHECAL [Suspect]
     Active Substance: BACLOFEN
     Dosage: CONCENTRATION 2000 MCG/ML, 400 MCG/DAY
     Route: 037
     Dates: start: 201505
  5. BACLOFEN INTRATHECAL [Suspect]
     Active Substance: BACLOFEN
     Dosage: CONCENTRATION 2200 MCG/ML, 399.8 MCG/DAY
     Route: 037
     Dates: start: 20150601
  6. MORPHINE [Suspect]
     Active Substance: MORPHINE
     Dosage: 1.181 MG/DAY
     Route: 037
     Dates: start: 20150601
  7. ROXANOL [Suspect]
     Active Substance: MORPHINE SULFATE
     Indication: PRODUCT USED FOR UNKNOWN INDICATION
     Dosage: UNK
     Route: 065
  8. MORPHINE [Suspect]
     Active Substance: MORPHINE
     Indication: PAIN
     Dosage: UNK
     Route: 037

REACTIONS (4)
  - Nausea [Recovered/Resolved]
  - Muscle spasticity [Recovered/Resolved]
  - Vomiting [Recovered/Resolved]
  - Adverse drug reaction [Recovered/Resolved]

NARRATIVE: CASE EVENT DATE: 20150501
